FAERS Safety Report 6912775-8 (Version None)
Quarter: 2010Q3

REPORT INFORMATION
  Report Type: 
  Country: None (occurrence: None)
  Receive Date: 20100806
  Receipt Date: 20081211
  Transmission Date: 20110219
  Serious: No
  Sender: FDA-Public Use
  Company Number: US-PFIZER INC-2007094098

PATIENT
  Age: 79 Year
  Sex: Female

DRUGS (2)
  1. DETROL [Suspect]
     Indication: BLADDER DISORDER
  2. DETROL LA [Suspect]

REACTIONS (4)
  - AGITATION [None]
  - BLOOD PRESSURE INCREASED [None]
  - DRUG EFFECT DECREASED [None]
  - NERVOUSNESS [None]
